FAERS Safety Report 6070490-X (Version None)
Quarter: 2009Q1

REPORT INFORMATION
  Report Type: 
  Country: None (occurrence: None)
  Receive Date: 20090209
  Receipt Date: 20090203
  Transmission Date: 20090719
  Serious: Yes (Death, Other)
  Sender: FDA-Public Use
  Company Number: ES-MERCK-0902ESP00018

PATIENT
  Sex: Male

DRUGS (2)
  1. ISENTRESS [Suspect]
     Indication: HIV INFECTION
     Route: 048
     Dates: start: 20081201
  2. DARUNAVIR [Suspect]
     Route: 065
     Dates: start: 20081201

REACTIONS (2)
  - DEATH [None]
  - PSYCHOTIC DISORDER [None]
